FAERS Safety Report 12273549 (Version 2)
Quarter: 2016Q3

REPORT INFORMATION
  Report Type: Report from Study
  Country: US (occurrence: US)
  Receive Date: 20160415
  Receipt Date: 20160815
  Transmission Date: 20161109
  Serious: Yes (Hospitalization)
  Sender: FDA-Public Use
  Company Number: US-ACTELION-A-NJ2016-134383

PATIENT
  Age: 30 Year
  Sex: Male

DRUGS (3)
  1. OPSUMIT [Suspect]
     Active Substance: MACITENTAN
     Indication: PULMONARY ARTERIAL HYPERTENSION
     Dosage: 10 MG, QD
     Route: 048
     Dates: start: 20151008
  2. ADCIRCA [Concomitant]
     Active Substance: TADALAFIL
  3. REMODULIN [Concomitant]
     Active Substance: TREPROSTINIL

REACTIONS (19)
  - Fall [Unknown]
  - Constipation [Unknown]
  - Hyperhidrosis [Unknown]
  - Dizziness [Unknown]
  - Depression [Unknown]
  - Fatigue [Unknown]
  - Loss of consciousness [Unknown]
  - Heart rate increased [Unknown]
  - Cough [Unknown]
  - Anal incontinence [Unknown]
  - Decreased appetite [Unknown]
  - Urinary incontinence [Unknown]
  - Diarrhoea [Unknown]
  - Anxiety [Unknown]
  - Dehydration [Unknown]
  - Syncope [Unknown]
  - Blood pressure decreased [Unknown]
  - Sleep disorder [Unknown]
  - Nocturnal dyspnoea [Unknown]
